FAERS Safety Report 15219832 (Version 1)
Quarter: 2018Q4

REPORT INFORMATION
  Report Type: Spontaneous
  Country: TR (occurrence: TR)
  Receive Date: 20180731
  Receipt Date: 20180731
  Transmission Date: 20190204
  Serious: Yes (Life-Threatening)
  Sender: FDA-Public Use
  Company Number: TR-TEVA-2018-TR-935440

PATIENT
  Age: 28 Year
  Sex: Female
  Weight: 65 kg

DRUGS (1)
  1. MODIODAL 100 MG TABLET [Suspect]
     Active Substance: MODAFINIL
     Indication: NARCOLEPSY
     Dosage: MODAFINIL 100 MG TABLET
     Route: 048

REACTIONS (6)
  - Nervousness [Unknown]
  - Negative thoughts [Unknown]
  - Suicidal ideation [Unknown]
  - Depression [Unknown]
  - Hostility [Unknown]
  - Crying [Unknown]

NARRATIVE: CASE EVENT DATE: 20180704
